FAERS Safety Report 8618497-X (Version None)
Quarter: 2012Q3

REPORT INFORMATION
  Report Type: 
  Country: None (occurrence: None)
  Receive Date: 20120814
  Receipt Date: 20120814
  Transmission Date: 20120928
  Serious: No
  Sender: FDA-Public Use
  Company Number: None

PATIENT
  Age: 79 Year
  Sex: Male
  Weight: 86 kg

DRUGS (1)
  1. HEPARIN [Suspect]
     Indication: ATRIAL FIBRILLATION
     Dosage: 8 ML PER HOUR IV
     Route: 042
     Dates: start: 20110210, end: 20110212

REACTIONS (3)
  - ATRIAL FLUTTER [None]
  - ATRIAL FIBRILLATION [None]
  - HEPARIN-INDUCED THROMBOCYTOPENIA [None]
